FAERS Safety Report 13923496 (Version 1)
Quarter: 2017Q3

REPORT INFORMATION
  Report Type: Spontaneous
  Country: US (occurrence: US)
  Receive Date: 20170831
  Receipt Date: 20170831
  Transmission Date: 20171127
  Serious: Yes (Other)
  Sender: FDA-Public Use
  Company Number: US-LUPIN SOMERSET-2017-04891

PATIENT
  Age: 26 Year
  Sex: Male

DRUGS (1)
  1. OXYCODONE HYDROCHLORIDE TABLETS [Suspect]
     Active Substance: OXYCODONE HYDROCHLORIDE
     Indication: PAIN
     Dosage: UNK
     Route: 042

REACTIONS (2)
  - Pulmonary granuloma [Unknown]
  - Incorrect route of drug administration [Unknown]
